FAERS Safety Report 14987906 (Version 4)
Quarter: 2018Q3

REPORT INFORMATION
  Report Type: Report from Study
  Country: CN (occurrence: CN)
  Receive Date: 20180608
  Receipt Date: 20180709
  Transmission Date: 20181010
  Serious: Yes (Hospitalization)
  Sender: FDA-Public Use
  Company Number: CN-AMGEN-CHNCT2018077237

PATIENT
  Age: 61 Year
  Sex: Female
  Weight: 47.5 kg

DRUGS (10)
  1. DEXAMETHASONE. [Suspect]
     Active Substance: DEXAMETHASONE
     Indication: PLASMA CELL MYELOMA
     Dosage: 20 MG, PER CHEMO REGIM
     Route: 048
     Dates: start: 20180510
  2. GEFARNATE [Concomitant]
     Active Substance: GEFARNATE
     Dosage: 50 MG, UNK
     Route: 048
     Dates: start: 20180605, end: 20180612
  3. BICYCLOL [Concomitant]
     Active Substance: BICYCLOL
     Dosage: 50 MG, UNK
     Route: 048
     Dates: start: 20180605, end: 20180606
  4. ACICLOVIR [Concomitant]
     Active Substance: ACYCLOVIR
     Dosage: 0.4 G, UNK
     Route: 048
     Dates: start: 20180605
  5. CARFILZOMIB [Suspect]
     Active Substance: CARFILZOMIB
     Indication: PLASMA CELL MYELOMA
     Dosage: 36 MG, PER CHEMO REGIM
     Route: 042
     Dates: start: 20180510
  6. CARFILZOMIB [Suspect]
     Active Substance: CARFILZOMIB
     Dosage: 41 MG, PER CHEMO REGIM
     Route: 042
     Dates: start: 20180516
  7. DEXAMETHASONE. [Suspect]
     Active Substance: DEXAMETHASONE
     Dosage: UNK, PER CHEMO REGIM
     Route: 048
     Dates: start: 20180621
  8. SODIUM CHLORIDE. [Concomitant]
     Active Substance: SODIUM CHLORIDE
     Dosage: 250 ML AND 0.4 G, UNK
     Route: 042
     Dates: start: 20180510
  9. CARFILZOMIB [Suspect]
     Active Substance: CARFILZOMIB
     Dosage: UNK UNK, PER CHEMO REGIM
     Route: 042
     Dates: start: 20180621
  10. LIDOCAINE HYDROCHLORIDE. [Concomitant]
     Active Substance: LIDOCAINE HYDROCHLORIDE
     Dosage: 5 ML, UNK
     Route: 050
     Dates: start: 20180426, end: 20180426

REACTIONS (1)
  - Hepatic function abnormal [Recovered/Resolved]

NARRATIVE: CASE EVENT DATE: 20180606
